FAERS Safety Report 5928476-9 (Version None)
Quarter: 2008Q4

REPORT INFORMATION
  Report Type: 
  Country: None (occurrence: None)
  Receive Date: 20081023
  Receipt Date: 20081015
  Transmission Date: 20090506
  Serious: Yes (Other)
  Sender: FDA-Public Use
  Company Number: GB-BAXTER-2008BH011011

PATIENT
  Age: 39 Year
  Sex: Female

DRUGS (3)
  1. CYCLOPHOSPHAMIDE [Suspect]
     Indication: EYE INFECTION
     Dosage: DOSE UNIT:UNKNOWN
     Route: 065
     Dates: start: 20060301
  2. CYCLOSPORINE [Suspect]
     Indication: EYE INFECTION
     Dosage: DOSE UNIT:UNKNOWN
     Route: 065
     Dates: start: 20060301
  3. CYCLOSPORINE [Concomitant]
     Dates: start: 20050901

REACTIONS (1)
  - EYE INFECTION STAPHYLOCOCCAL [None]
